FAERS Safety Report 9491440 (Version 1)
Quarter: 2013Q3

REPORT INFORMATION
  Report Type: Spontaneous
  Country: AU (occurrence: None)
  Receive Date: 20130827
  Receipt Date: 20130827
  Transmission Date: 20140515
  Serious: Yes (Death)
  Sender: FDA-Public Use
  Company Number: 009-21880-13081831

PATIENT
  Sex: 0

DRUGS (1)
  1. REVLIMID [Suspect]
     Indication: 5Q MINUS SYNDROME
     Route: 048

REACTIONS (1)
  - Death [None]
